FAERS Safety Report 10156685 (Version 1)
Quarter: 2014Q2

REPORT INFORMATION
  Report Type: Spontaneous
  Country: US (occurrence: None)
  Receive Date: 20140506
  Receipt Date: 20140506
  Transmission Date: 20141212
  Serious: Yes (Hospitalization)
  Sender: FDA-Public Use
  Company Number: None

PATIENT
  Age: 49 Year
  Sex: Female

DRUGS (14)
  1. WARFARIN [Suspect]
     Indication: ATRIAL FIBRILLATION
     Dosage: 6MG MWF, 4 MG T, TH, SA, SU?DAILY?PO
     Route: 048
     Dates: start: 20120203
  2. ASPIRIN [Concomitant]
  3. FERROUS SULFATE [Concomitant]
  4. FISH OIL [Concomitant]
  5. EZCTIMIBE [Concomitant]
  6. FUROSEMIDE [Concomitant]
  7. LISINOPRIL [Concomitant]
  8. METOPROLOL [Concomitant]
  9. POTASSIUM CHLORIDE [Concomitant]
  10. VITAMIN E [Concomitant]
  11. MAGNESIUM OXIDE [Concomitant]
  12. ROSUVASTATIN [Concomitant]
  13. PHYTONADIONE [Concomitant]
  14. LOMITAPIDE [Concomitant]

REACTIONS (8)
  - Influenza like illness [None]
  - VIIth nerve paralysis [None]
  - Headache [None]
  - Weight decreased [None]
  - Deafness unilateral [None]
  - Tinnitus [None]
  - International normalised ratio increased [None]
  - Subdural haematoma [None]
